FAERS Safety Report 8125139-9 (Version None)
Quarter: 2012Q1

REPORT INFORMATION
  Report Type: 
  Country: None (occurrence: None)
  Receive Date: 20120209
  Receipt Date: 20120130
  Transmission Date: 20120608
  Serious: Yes (Other)
  Sender: FDA-Public Use
  Company Number: CA-UCBSA-050460

PATIENT
  Age: 70 Year
  Sex: Female

DRUGS (10)
  1. CIMZIA [Suspect]
     Indication: RHEUMATOID ARTHRITIS
     Route: 058
     Dates: start: 20110211, end: 20111210
  2. FOSAMAX [Concomitant]
  3. DIOVAN [Concomitant]
  4. TYLENOL W/ CODEINE NO. 3 [Concomitant]
  5. CLONAZEPAM [Concomitant]
  6. COLACE [Concomitant]
  7. TYLENOL-500 [Concomitant]
  8. PLAQUENIL [Concomitant]
  9. LYRICA [Concomitant]
  10. CALCIUM W/VIT D [Concomitant]

REACTIONS (1)
  - SHOULDER ARTHROPLASTY [None]
